FAERS Safety Report 14266991 (Version 2)
Quarter: 2018Q1

REPORT INFORMATION
  Report Type: Report from Study
  Country: None (occurrence: US)
  Receive Date: 20171211
  Receipt Date: 20180117
  Transmission Date: 20180508
  Serious: Yes (Hospitalization)
  Sender: FDA-Public Use
  Company Number: US-ABBVIE-17K-163-2187146-00

PATIENT
  Age: 67 Year
  Sex: Female

DRUGS (3)
  1. METHOTREXATE. [Concomitant]
     Active Substance: METHOTREXATE
     Indication: PRODUCT USED FOR UNKNOWN INDICATION
  2. HUMIRA [Suspect]
     Active Substance: ADALIMUMAB
     Indication: CROHN^S DISEASE
     Route: 058
     Dates: start: 2015
  3. HUMIRA [Suspect]
     Active Substance: ADALIMUMAB
     Indication: PSORIASIS

REACTIONS (13)
  - Arthropod bite [Not Recovered/Not Resolved]
  - Glucose tolerance impaired [Unknown]
  - Weight increased [Unknown]
  - Loss of consciousness [Recovering/Resolving]
  - Injection site pain [Recovered/Resolved]
  - Crohn^s disease [Recovering/Resolving]
  - Biliary colic [Recovering/Resolving]
  - Dizziness [Unknown]
  - Pain [Not Recovered/Not Resolved]
  - Influenza [Unknown]
  - Intentional product misuse [Not Recovered/Not Resolved]
  - Abdominal pain upper [Unknown]
  - Concussion [Unknown]

NARRATIVE: CASE EVENT DATE: 201708
